FAERS Safety Report 20810078 (Version 1)
Quarter: 2022Q2

REPORT INFORMATION
  Report Type: Spontaneous
  Country: US (occurrence: US)
  Receive Date: 20220510
  Receipt Date: 20220510
  Transmission Date: 20220720
  Serious: No
  Sender: FDA-Public Use
  Company Number: US-OYSTER POINT PHARMA, INC.-2022OYS00215

PATIENT
  Sex: Male

DRUGS (2)
  1. TYRVAYA [Suspect]
     Active Substance: VARENICLINE TARTRATE
     Indication: Dry eye
     Dosage: ONCE, 15-20 MINUTES BEFORE BED
  2. UNSPECIFIED MEDICATIONS FOR HIGH BLOOD PRESSURE [Concomitant]

REACTIONS (1)
  - Palpitations [Recovered/Resolved]
